FAERS Safety Report 8446331-X (Version None)
Quarter: 2012Q2

REPORT INFORMATION
  Report Type: 
  Country: None (occurrence: None)
  Receive Date: 20120618
  Receipt Date: 20120613
  Transmission Date: 20120825
  Serious: No
  Sender: FDA-Public Use
  Company Number: US-PFIZER INC-2012142848

PATIENT
  Sex: Female
  Weight: 63.492 kg

DRUGS (8)
  1. EFFEXOR XR [Suspect]
     Dosage: 37.5 MG, 1X/DAY
     Route: 048
     Dates: end: 20120611
  2. EFFEXOR XR [Suspect]
     Indication: DEPRESSION
     Dosage: 37.5 MG, 1X/DAY
     Route: 048
  3. KLONOPIN [Concomitant]
     Indication: ANXIETY
     Dosage: UNK
  4. ZIAC [Concomitant]
     Indication: HYPERTENSION
     Dosage: UNK
  5. EFFEXOR XR [Suspect]
     Dosage: 150 MG, 1X/DAY
     Route: 048
  6. PRAVACHOL [Concomitant]
     Indication: BLOOD CHOLESTEROL INCREASED
     Dosage: UNK
  7. EFFEXOR XR [Suspect]
     Dosage: 225 MG, 1X/DAY
     Route: 048
  8. EFFEXOR XR [Suspect]
     Indication: ANXIETY
     Dosage: 75 MG, 1X/DAY
     Route: 048

REACTIONS (4)
  - HYPERTENSION [None]
  - TINNITUS [None]
  - DRUG INEFFECTIVE [None]
  - BLOOD CHOLESTEROL INCREASED [None]
